FAERS Safety Report 4942094-0 (Version None)
Quarter: 2006Q1

REPORT INFORMATION
  Report Type: 
  Country: None (occurrence: None)
  Receive Date: 20060313
  Receipt Date: 20050608
  Transmission Date: 20060701
  Serious: No
  Sender: FDA-Public Use
  Company Number: US-GLAXOSMITHKLINE-A0561744A

PATIENT
  Age: 51 Year
  Sex: Male

DRUGS (4)
  1. NICORETTE [Suspect]
     Indication: DRUG WITHDRAWAL MAINTENANCE THERAPY
  2. NICORETTE [Suspect]
     Indication: DRUG WITHDRAWAL MAINTENANCE THERAPY
  3. MEMBERS MARK NICOTINE GUM 2MG, ORIGINAL [Suspect]
     Indication: DRUG WITHDRAWAL MAINTENANCE THERAPY
  4. MEMBERS MARK NICOTINE GUM 4MG, ORIGINAL [Suspect]
     Indication: DRUG WITHDRAWAL MAINTENANCE THERAPY

REACTIONS (3)
  - BURNING SENSATION [None]
  - DRUG ABUSER [None]
  - GLOSSODYNIA [None]
